FAERS Safety Report 5491148-1 (Version None)
Quarter: 2007Q4

REPORT INFORMATION
  Report Type: 
  Country: None (occurrence: None)
  Receive Date: 20071019
  Receipt Date: 20071008
  Transmission Date: 20080405
  Serious: Yes (Life-Threatening, Hospitalization)
  Sender: FDA-Public Use
  Company Number: FR-PFIZER INC-2007084298

PATIENT
  Age: 52 Year
  Sex: Male

DRUGS (5)
  1. TAHOR [Suspect]
     Indication: ANGIOPLASTY
  2. TRIATEC [Concomitant]
  3. KARDEGIC [Concomitant]
  4. PLAVIX [Concomitant]
  5. AMLOR [Concomitant]

REACTIONS (3)
  - DRUG RASH WITH EOSINOPHILIA AND SYSTEMIC SYMPTOMS [None]
  - RENAL FAILURE ACUTE [None]
  - RESPIRATORY FAILURE [None]
